FAERS Safety Report 6882380-0 (Version None)
Quarter: 2010Q3

REPORT INFORMATION
  Report Type: 
  Country: None (occurrence: None)
  Receive Date: 20100729
  Receipt Date: 20100722
  Transmission Date: 20110219
  Serious: Yes (Hospitalization)
  Sender: FDA-Public Use
  Company Number: FR-BRISTOL-MYERS SQUIBB COMPANY-15177884

PATIENT
  Age: 42 Year
  Sex: Male
  Weight: 95 kg

DRUGS (7)
  1. ABILIFY [Suspect]
     Indication: SCHIZOPHRENIA
     Dosage: REINTRODUCED AT 20 MG/D INTERRUPTED ON 22MAY10+RESTARTED ON 10JUN10
     Route: 048
  2. ZYPREXA [Suspect]
     Indication: SCHIZOPHRENIA
     Route: 048
     Dates: start: 20090101, end: 20100519
  3. RISPERDAL [Suspect]
     Indication: SCHIZOPHRENIA, PARANOID TYPE
     Route: 048
     Dates: start: 20100519, end: 20100520
  4. TERCIAN [Suspect]
     Indication: SCHIZOPHRENIA
     Dates: end: 20100519
  5. LYSANXIA [Concomitant]
  6. ZOLPIDEM [Concomitant]
     Indication: SCHIZOPHRENIA
     Dates: end: 20100519
  7. FORLAX [Concomitant]
     Indication: CONSTIPATION
     Dosage: MACROGOL 4000

REACTIONS (3)
  - INTESTINAL OBSTRUCTION [None]
  - MANIA [None]
  - NEUROLEPTIC MALIGNANT SYNDROME [None]
